FAERS Safety Report 20751479 (Version 2)
Quarter: 2022Q2

REPORT INFORMATION
  Report Type: Spontaneous
  Country: US (occurrence: US)
  Receive Date: 20220426
  Receipt Date: 20220519
  Transmission Date: 20220721
  Serious: Yes (Hospitalization, Other)
  Sender: FDA-Public Use
  Company Number: US-SUNOVION-2022SUN001283

PATIENT
  Age: 78 Year
  Sex: Male

DRUGS (1)
  1. KYNMOBI [Suspect]
     Active Substance: APOMORPHINE HYDROCHLORIDE
     Indication: Parkinson^s disease
     Dosage: 25 MG, AS NECESSARY
     Route: 060

REACTIONS (3)
  - Leukaemia [Not Recovered/Not Resolved]
  - Product packaging difficult to open [Unknown]
  - Product label issue [Unknown]

NARRATIVE: CASE EVENT DATE: 20220419
